FAERS Safety Report 5670320-1 (Version None)
Quarter: 2008Q2

REPORT INFORMATION
  Report Type: 
  Country: None (occurrence: None)
  Receive Date: 20080303
  Receipt Date: 20070629
  Transmission Date: 20081010
  Serious: Yes (Hospitalization)
  Sender: FDA-Public Use
  Company Number: MK-6035496

PATIENT
  Age: 40 Year
  Sex: Female

DRUGS (4)
  1. AMNESTEEM [Suspect]
     Indication: ACNE
     Dosage: 40 MG;DAILY;ORAL ; 40 MG;TWICE A DAY;ORAL ; 40 MG;TWICE A DAY;ORAL ; 40 MG;3 TIMES A DAY;ORAL
     Route: 048
     Dates: start: 20061213, end: 20070101
  2. AMNESTEEM [Suspect]
     Indication: ACNE
     Dosage: 40 MG;DAILY;ORAL ; 40 MG;TWICE A DAY;ORAL ; 40 MG;TWICE A DAY;ORAL ; 40 MG;3 TIMES A DAY;ORAL
     Route: 048
     Dates: start: 20070101, end: 20070331
  3. AMNESTEEM [Suspect]
     Indication: ACNE
     Dosage: 40 MG;DAILY;ORAL ; 40 MG;TWICE A DAY;ORAL ; 40 MG;TWICE A DAY;ORAL ; 40 MG;3 TIMES A DAY;ORAL
     Route: 048
     Dates: start: 20070401, end: 20070601
  4. AMNESTEEM [Suspect]
     Indication: ACNE
     Dosage: 40 MG;DAILY;ORAL ; 40 MG;TWICE A DAY;ORAL ; 40 MG;TWICE A DAY;ORAL ; 40 MG;3 TIMES A DAY;ORAL
     Route: 048
     Dates: start: 20070401, end: 20070601

REACTIONS (1)
  - OVARIAN CYST [None]
